FAERS Safety Report 13037104 (Version 3)
Quarter: 2017Q2

REPORT INFORMATION
  Report Type: Spontaneous
  Country: DE (occurrence: DE)
  Receive Date: 20161216
  Receipt Date: 20170619
  Transmission Date: 20170830
  Serious: Yes (Hospitalization, Other)
  Sender: FDA-Public Use
  Company Number: DE-EXELIXIS-CABO-16007739

PATIENT
  Age: 67 Year
  Sex: Female
  Weight: 55 kg

DRUGS (7)
  1. CABOMETYX [Suspect]
     Active Substance: CABOZANTINIB S-MALATE
     Dosage: 80 MG, QD
     Route: 048
     Dates: start: 2016
  2. MORPHINE HCL [Concomitant]
     Active Substance: MORPHINE HYDROCHLORIDE
  3. ACIC [Concomitant]
     Active Substance: ACYCLOVIR
     Indication: HERPES ZOSTER
  4. DENOSUMAB [Concomitant]
     Active Substance: DENOSUMAB
  5. PREGABALIN. [Concomitant]
     Active Substance: PREGABALIN
     Indication: HYPOTHYROIDISM
  6. L-THYROXINE [Concomitant]
     Active Substance: LEVOTHYROXINE
     Indication: HYPOTHYROIDISM
  7. CABOMETYX [Suspect]
     Active Substance: CABOZANTINIB S-MALATE
     Indication: ADENOCARCINOMA
     Dosage: 140 MG, QD
     Route: 048
     Dates: start: 20160906, end: 2016

REACTIONS (18)
  - Hypomagnesaemia [Recovering/Resolving]
  - Tongue discomfort [Recovering/Resolving]
  - Dyspnoea [Recovering/Resolving]
  - Dysgeusia [Recovering/Resolving]
  - Hypothyroidism [Recovering/Resolving]
  - Epistaxis [Recovering/Resolving]
  - Weight decreased [Recovering/Resolving]
  - Fine motor skill dysfunction [Recovering/Resolving]
  - Hypokalaemia [Recovering/Resolving]
  - Asthenia [Recovering/Resolving]
  - Headache [Recovering/Resolving]
  - Hypocalcaemia [Recovering/Resolving]
  - Nausea [Recovering/Resolving]
  - Skin fissures [Recovering/Resolving]
  - Decreased appetite [Recovering/Resolving]
  - Off label use [Unknown]
  - Pancytopenia [Recovering/Resolving]
  - Diarrhoea [Recovering/Resolving]

NARRATIVE: CASE EVENT DATE: 20160907
